FAERS Safety Report 8058617-1 (Version None)
Quarter: 2012Q1

REPORT INFORMATION
  Report Type: 
  Country: None (occurrence: None)
  Receive Date: 20120119
  Receipt Date: 20120119
  Transmission Date: 20120608
  Serious: Yes (Hospitalization)
  Sender: FDA-Public Use
  Company Number: None

PATIENT
  Age: 82 Year
  Sex: Male
  Weight: 66 kg

DRUGS (10)
  1. ASPIRIN [Suspect]
     Indication: CORONARY ARTERY DISEASE
     Dosage: 81MG DAILY PO CHRONIC
     Route: 048
  2. SIMVASTATIN [Concomitant]
  3. PLAVIX [Suspect]
     Indication: CORONARY ARTERY DISEASE
     Dosage: 75MG DAILY PO CHRONIC
     Route: 048
  4. LISINOPRIL [Concomitant]
  5. ISOSORBIDE DINITRATE [Concomitant]
  6. XALATAN [Concomitant]
  7. ASCORBIC ACID [Concomitant]
  8. LASIX [Concomitant]
  9. COREG [Concomitant]
  10. FINASTERIDE [Concomitant]

REACTIONS (2)
  - DIVERTICULUM [None]
  - LOWER GASTROINTESTINAL HAEMORRHAGE [None]
